FAERS Safety Report 17929283 (Version 16)
Quarter: 2025Q4

REPORT INFORMATION
  Report Type: Report from Study
  Country: US (occurrence: US)
  Receive Date: 20200623
  Receipt Date: 20251119
  Transmission Date: 20260118
  Serious: Yes (Other)
  Sender: TAKEDA
  Company Number: US-SHIRE-US202020370

PATIENT
  Age: 71 Year
  Sex: Female
  Weight: 57 kg

DRUGS (57)
  1. HUMAN IMMUNOGLOBULIN G [Suspect]
     Active Substance: HUMAN IMMUNOGLOBULIN G
     Indication: Immunodeficiency common variable
     Dosage: 60 GRAM, Q4WEEKS
  2. RECLAST [Suspect]
     Active Substance: ZOLEDRONIC ACID
     Indication: Product used for unknown indication
     Dosage: UNK
  3. ACETAMINOPHEN [Concomitant]
     Active Substance: ACETAMINOPHEN
     Dosage: UNK
  4. DIPHENHYDRAMINE [Concomitant]
     Active Substance: DIPHENHYDRAMINE
     Dosage: UNK
  5. SODIUM CHLORIDE [Concomitant]
     Active Substance: SODIUM CHLORIDE
     Dosage: UNK
  6. HEPARIN [Concomitant]
     Active Substance: HEPARIN SODIUM
     Dosage: UNK
  7. ONDANSETRON [Concomitant]
     Active Substance: ONDANSETRON
     Dosage: UNK
  8. Lmx [Concomitant]
     Dosage: UNK
  9. EPINEPHRINE [Concomitant]
     Active Substance: EPINEPHRINE
     Dosage: UNK
  10. SOLU-MEDROL [Concomitant]
     Active Substance: METHYLPREDNISOLONE SODIUM SUCCINATE
     Dosage: UNK
  11. ZOFRAN [Concomitant]
     Active Substance: ONDANSETRON HYDROCHLORIDE
     Dosage: UNK
  12. SEROQUEL [Concomitant]
     Active Substance: QUETIAPINE FUMARATE
     Dosage: UNK
  13. GABAPENTIN [Concomitant]
     Active Substance: GABAPENTIN
     Dosage: UNK
  14. LASIX [Concomitant]
     Active Substance: FUROSEMIDE
     Dosage: UNK
  15. MUPIROCIN [Concomitant]
     Active Substance: MUPIROCIN
     Dosage: UNK
  16. ACYCLOVIR [Concomitant]
     Active Substance: ACYCLOVIR
     Dosage: UNK
  17. METRONIDAZOLE [Concomitant]
     Active Substance: METRONIDAZOLE
     Dosage: UNK
  18. BACLOFEN [Concomitant]
     Active Substance: BACLOFEN
     Dosage: UNK
  19. ADVAIR HFA [Concomitant]
     Active Substance: FLUTICASONE PROPIONATE\SALMETEROL XINAFOATE
     Dosage: UNK
  20. ATORVASTATIN CALCIUM [Concomitant]
     Active Substance: ATORVASTATIN CALCIUM
     Dosage: UNK
  21. OMEPRAZOLE [Concomitant]
     Active Substance: OMEPRAZOLE
     Dosage: UNK
  22. VICTOZA [Concomitant]
     Active Substance: LIRAGLUTIDE
     Dosage: UNK
  23. VITAMIN D3 [Concomitant]
     Active Substance: CHOLECALCIFEROL
     Dosage: UNK
  24. FLUNISOLIDE [Concomitant]
     Active Substance: FLUNISOLIDE
     Dosage: UNK
  25. PANTOPRAZOLE SODIUM [Concomitant]
     Active Substance: PANTOPRAZOLE SODIUM
     Dosage: UNK
  26. NOVOLOG [Concomitant]
     Active Substance: INSULIN ASPART
     Dosage: UNK
  27. ALBUTEROL SULFATE [Concomitant]
     Active Substance: ALBUTEROL SULFATE
     Dosage: UNK
  28. HYDROCHLOROTHIAZIDE\TRIAMTERENE [Concomitant]
     Active Substance: HYDROCHLOROTHIAZIDE\TRIAMTERENE
     Dosage: UNK
  29. PROAIR HFA [Concomitant]
     Active Substance: ALBUTEROL SULFATE
     Dosage: UNK
  30. SODIUM CHLORIDE [Concomitant]
     Active Substance: SODIUM CHLORIDE
     Dosage: UNK
  31. LORAZEPAM [Concomitant]
     Active Substance: LORAZEPAM
     Dosage: UNK
  32. DEXTROSE [Concomitant]
     Active Substance: DEXTROSE MONOHYDRATE
     Dosage: UNK
  33. TRIAMTERENE [Concomitant]
     Active Substance: TRIAMTERENE
     Dosage: UNK
  34. ALBUTEROL [Concomitant]
     Active Substance: ALBUTEROL
     Dosage: UNK
  35. BUSPIRONE [Concomitant]
     Active Substance: BUSPIRONE HYDROCHLORIDE
     Dosage: UNK
  36. ATORVASTATIN [Concomitant]
     Active Substance: ATORVASTATIN
     Dosage: UNK
  37. PANTOPRAZOLE [Concomitant]
     Active Substance: PANTOPRAZOLE
     Dosage: UNK
  38. NOVOLOG [Concomitant]
     Active Substance: INSULIN ASPART
     Dosage: UNK
  39. IBUPROFEN [Concomitant]
     Active Substance: IBUPROFEN
     Dosage: UNK
  40. SOLU-MEDROL [Concomitant]
     Active Substance: METHYLPREDNISOLONE SODIUM SUCCINATE
     Dosage: UNK
  41. CALCIUM\CHOLECALCIFEROL [Concomitant]
     Active Substance: CALCIUM\CHOLECALCIFEROL
     Dosage: UNK
  42. DOCUSATE SODIUM [Concomitant]
     Active Substance: DOCUSATE SODIUM
     Dosage: UNK
  43. TYLENOL [Concomitant]
     Active Substance: ACETAMINOPHEN
     Dosage: UNK
  44. LAMOTRIGINE [Concomitant]
     Active Substance: LAMOTRIGINE
     Dosage: UNK
  45. LIDODERM [Concomitant]
     Active Substance: LIDOCAINE
     Dosage: UNK
  46. CLONIDINE HYDROCHLORIDE [Concomitant]
     Active Substance: CLONIDINE HYDROCHLORIDE
     Dosage: UNK
  47. LANTUS [Concomitant]
     Active Substance: INSULIN GLARGINE
     Dosage: UNK
  48. LINZESS [Concomitant]
     Active Substance: LINACLOTIDE
     Dosage: UNK
  49. CLOPIDOGREL [Concomitant]
     Active Substance: CLOPIDOGREL BISULFATE
     Dosage: UNK
  50. TYLENOL EXTRA STRENGTH [Concomitant]
     Active Substance: ACETAMINOPHEN
     Dosage: UNK
  51. PROAIR HFA [Concomitant]
     Active Substance: ALBUTEROL SULFATE
     Dosage: UNK
  52. BUSPIRONE HCL [Concomitant]
     Active Substance: BUSPIRONE HYDROCHLORIDE
     Dosage: UNK
  53. DIPHENHYDRAMINE HYDROCHLORIDE [Concomitant]
     Active Substance: DIPHENHYDRAMINE HYDROCHLORIDE
     Dosage: UNK
  54. VITAMINS [Concomitant]
     Active Substance: VITAMINS
     Dosage: UNK
  55. Dulcolax [Concomitant]
     Dosage: UNK
  56. MAGNESIUM [Concomitant]
     Active Substance: MAGNESIUM
     Dosage: UNK
  57. SENNA [Concomitant]
     Active Substance: SENNOSIDES
     Dosage: UNK

REACTIONS (11)
  - Polymyalgia rheumatica [Unknown]
  - Hand fracture [Unknown]
  - Weight decreased [Unknown]
  - Heart rate abnormal [Unknown]
  - Blood pressure abnormal [Unknown]
  - Inappropriate schedule of product administration [Unknown]
  - Product dose omission issue [Unknown]
  - Arthralgia [Unknown]
  - Myalgia [Unknown]
  - Nausea [Unknown]
  - Pain [Unknown]
